FAERS Safety Report 19246097 (Version 1)
Quarter: 2021Q2

REPORT INFORMATION
  Report Type: Spontaneous
  Country: US (occurrence: US)
  Receive Date: 20210511
  Receipt Date: 20210511
  Transmission Date: 20210717
  Serious: Yes (Death)
  Sender: FDA-Public Use
  Company Number: None

PATIENT
  Age: 70 Year
  Sex: Male

DRUGS (7)
  1. DONEPEZIL HCL [Concomitant]
     Active Substance: DONEPEZIL HYDROCHLORIDE
  2. TYLENOL [Concomitant]
     Active Substance: ACETAMINOPHEN
  3. EZETIMIBE. [Concomitant]
     Active Substance: EZETIMIBE
  4. SERTRALINE HCL [Concomitant]
     Active Substance: SERTRALINE HYDROCHLORIDE
  5. TRAMADOL HCL [Concomitant]
     Active Substance: TRAMADOL HYDROCHLORIDE
  6. CAPECITABINE 500 MG TABLET [Suspect]
     Active Substance: CAPECITABINE
  7. MEMANTINE HCL [Concomitant]
     Active Substance: MEMANTINE

REACTIONS (1)
  - Death [None]

NARRATIVE: CASE EVENT DATE: 20210511
